FAERS Safety Report 6075085-X (Version None)
Quarter: 2009Q1

REPORT INFORMATION
  Report Type: 
  Country: None (occurrence: None)
  Receive Date: 20090210
  Receipt Date: 20090210
  Transmission Date: 20090719
  Serious: Yes (Hospitalization)
  Sender: FDA-Public Use
  Company Number: None

PATIENT
  Sex: Female

DRUGS (1)
  1. LUNESTA [Suspect]
     Dosage: 1 TABLET HS PO
     Route: 048
     Dates: start: 20090206, end: 20090209

REACTIONS (2)
  - HALLUCINATION [None]
  - HYPOTENSION [None]
